FAERS Safety Report 15486036 (Version 2)
Quarter: 2018Q4

REPORT INFORMATION
  Report Type: Spontaneous
  Country: DE (occurrence: DE)
  Receive Date: 20181011
  Receipt Date: 20181116
  Transmission Date: 20190205
  Serious: Yes (Hospitalization, Other)
  Sender: FDA-Public Use
  Company Number: PHHY2018DE120594

PATIENT
  Age: 16 Year
  Sex: Male

DRUGS (3)
  1. VOTUBIA [Suspect]
     Active Substance: EVEROLIMUS
     Dosage: 10 MG, QD (10 MG TABLET)
     Route: 065
     Dates: start: 201806
  2. VOTUBIA [Suspect]
     Active Substance: EVEROLIMUS
     Dosage: 7.5 MG, UNK
     Route: 065
  3. VOTUBIA [Suspect]
     Active Substance: EVEROLIMUS
     Indication: TUBEROUS SCLEROSIS COMPLEX
     Dosage: 5 MG, UNK
     Route: 065
     Dates: start: 201803

REACTIONS (4)
  - Type 1 diabetes mellitus [Unknown]
  - Thirst [Unknown]
  - Diabetes mellitus [Unknown]
  - Weight decreased [Unknown]
